FAERS Safety Report 9618963 (Version 2)
Quarter: 2013Q4

REPORT INFORMATION
  Report Type: Spontaneous
  Country: FR (occurrence: FR)
  Receive Date: 20131014
  Receipt Date: 20131017
  Transmission Date: 20140711
  Serious: Yes (Death, Hospitalization, Other)
  Sender: FDA-Public Use
  Company Number: FR-B.I. PHARMACEUTICALS,INC./RIDGEFIELD-2013-FF-02481FF

PATIENT
  Age: 90 Year
  Sex: Female

DRUGS (3)
  1. PRADAXA [Suspect]
     Indication: ATRIAL FIBRILLATION
     Dosage: 220 MG
     Route: 048
     Dates: start: 201210, end: 20130820
  2. LODOZ [Concomitant]
  3. DUOTRAV [Concomitant]

REACTIONS (9)
  - Ischaemic stroke [Fatal]
  - Lung disorder [Fatal]
  - Coma [Unknown]
  - Anaemia [Unknown]
  - Melaena [Unknown]
  - Fatigue [Unknown]
  - Gastrointestinal haemorrhage [Recovered/Resolved]
  - Faeces discoloured [Unknown]
  - Red blood cell count decreased [Unknown]
